FAERS Safety Report 5694164-X (Version None)
Quarter: 2008Q2

REPORT INFORMATION
  Report Type: 
  Country: None (occurrence: None)
  Receive Date: 20080402
  Receipt Date: 20080317
  Transmission Date: 20081010
  Serious: Yes (Hospitalization)
  Sender: FDA-Public Use
  Company Number: 2008US000828

PATIENT
  Age: 69 Year
  Sex: Female
  Weight: 86.2 kg

DRUGS (1)
  1. AMEVIVE [Suspect]
     Indication: PSORIASIS
     Dosage: 15 MG, WEEKLY, INTRAMUCULAR
     Route: 030
     Dates: start: 20040126

REACTIONS (7)
  - ANGINA PECTORIS [None]
  - CHRONIC OBSTRUCTIVE PULMONARY DISEASE [None]
  - CONDITION AGGRAVATED [None]
  - HYPOXIA [None]
  - REFUSAL OF TREATMENT BY RELATIVE [None]
  - SUBCLAVIAN ARTERY STENOSIS [None]
  - TROPONIN INCREASED [None]
